FAERS Safety Report 10657512 (Version 1)
Quarter: 2014Q4

REPORT INFORMATION
  Report Type: Spontaneous
  Country: NO (occurrence: None)
  Receive Date: 20141215
  Receipt Date: 20141215
  Transmission Date: 20150529
  Serious: Yes (Disabling)
  Sender: FDA-Public Use
  Company Number: NO2014GSK022439

PATIENT
  Sex: Female

DRUGS (3)
  1. SEROXAT (PAROXETINE HYDROCHLORIDE) TABLET [Suspect]
     Active Substance: PAROXETINE HYDROCHLORIDE
     Indication: DEPRESSION
     Route: 048
     Dates: start: 20030409, end: 20101214
  2. SEROXAT (PAROXETINE HYDROCHLORIDE) TABLET [Suspect]
     Active Substance: PAROXETINE HYDROCHLORIDE
     Indication: ANXIETY
     Route: 048
     Dates: start: 20030409, end: 20101214
  3. VIVAL (DIAZEPAM) [Concomitant]

REACTIONS (11)
  - Obsessive thoughts [None]
  - Photophobia [None]
  - Mood altered [None]
  - Restlessness [None]
  - Post viral fatigue syndrome [None]
  - Apathy [None]
  - Anxiety [None]
  - Social phobia [None]
  - Hyperacusis [None]
  - Abdominal pain upper [None]
  - Fatigue [None]

NARRATIVE: CASE EVENT DATE: 2010
